FAERS Safety Report 7752564-8 (Version None)
Quarter: 2011Q3

REPORT INFORMATION
  Report Type: 
  Country: None (occurrence: None)
  Receive Date: 20110913
  Receipt Date: 20110902
  Transmission Date: 20111222
  Serious: Yes (Other)
  Sender: FDA-Public Use
  Company Number: MSTR-NO-1103S-0081

PATIENT
  Age: 73 Year
  Sex: Male
  Weight: 64 kg

DRUGS (3)
  1. METASTRON [Suspect]
     Indication: METASTATIC PAIN
     Dosage: NR, SINGLE DOSE, INTRAVENOUS
     Route: 042
     Dates: start: 20110112, end: 20110112
  2. DEXAMETHASONE [Concomitant]
  3. ETHINYL ESTRADIOL TAB [Concomitant]

REACTIONS (2)
  - PLATELET COUNT DECREASED [None]
  - SKIN HAEMORRHAGE [None]
